FAERS Safety Report 6555720-X (Version None)
Quarter: 2010Q1

REPORT INFORMATION
  Report Type: 
  Country: None (occurrence: None)
  Receive Date: 20100128
  Receipt Date: 20100118
  Transmission Date: 20100710
  Serious: Yes (Death)
  Sender: FDA-Public Use
  Company Number: US-ELI_LILLY_AND_COMPANY-US200911005377

PATIENT
  Sex: Female

DRUGS (11)
  1. SYMBYAX [Suspect]
     Indication: DEPRESSION
     Dosage: 1 D/F, UNK
     Dates: start: 20090716
  2. FENOFIBRATE [Concomitant]
     Dosage: 120 MG, DAILY (1/D)
     Route: 048
  3. LIPITOR [Concomitant]
     Dosage: 20 MG, DAILY (1/D)
     Route: 048
  4. LISINOPRIL [Concomitant]
     Dosage: 40 MG, DAILY (1/D)
     Route: 048
  5. METOPROLOL [Concomitant]
     Dosage: 100 MG, 2/D
     Route: 048
  6. SYMBICORT [Concomitant]
     Dosage: 1 D/F, 2/D
     Route: 011
  7. HYDROCHLOROTHIAZIDE [Concomitant]
     Dosage: 12.5 MG, DAILY (1/D)
     Route: 048
  8. ACTONEL [Concomitant]
     Dosage: 150 MG, DAILY (1/D)
     Route: 048
  9. MOBIC [Concomitant]
     Indication: ARTHRALGIA
     Dosage: 15 MG, DAILY (1/D)
     Dates: start: 20090818
  10. Z-PAK [Concomitant]
     Indication: BRONCHITIS
  11. PREDNISONE TAB [Concomitant]
     Indication: BRONCHITIS

REACTIONS (1)
  - ANEURYSM [None]
